FAERS Safety Report 8490073-1 (Version None)
Quarter: 2012Q3

REPORT INFORMATION
  Report Type: 
  Country: None (occurrence: None)
  Receive Date: 20120705
  Receipt Date: 20120625
  Transmission Date: 20120928
  Serious: No
  Sender: FDA-Public Use
  Company Number: US-ASTRAZENECA-2010SE53691

PATIENT
  Age: 73 Year
  Sex: Female

DRUGS (3)
  1. NEXIUM [Suspect]
     Route: 048
  2. NEXIUM [Suspect]
     Indication: GASTROOESOPHAGEAL REFLUX DISEASE
     Route: 048
     Dates: end: 20100601
  3. NEXIUM [Suspect]
     Route: 048

REACTIONS (9)
  - MALAISE [None]
  - MUSCLE SPASMS [None]
  - INFLAMMATION [None]
  - INTENTIONAL DRUG MISUSE [None]
  - FLATULENCE [None]
  - ADVERSE EVENT [None]
  - DYSPEPSIA [None]
  - SWELLING [None]
  - ABDOMINAL DISTENSION [None]
